FAERS Safety Report 24413859 (Version 1)
Quarter: 2024Q4

REPORT INFORMATION
  Report Type: Report from Study
  Country: US (occurrence: US)
  Receive Date: 20241008
  Receipt Date: 20241008
  Transmission Date: 20250115
  Serious: No
  Sender: TG THERAPEUTICS
  Company Number: US-TG THERAPEUTICS INC.-TGT003909

PATIENT

DRUGS (7)
  1. UBLITUXIMAB [Suspect]
     Active Substance: UBLITUXIMAB
     Indication: Multiple sclerosis
     Dosage: 150 MILLIGRAM
     Route: 042
     Dates: start: 20240815, end: 20240815
  2. MAGNESIUM [Concomitant]
     Active Substance: MAGNESIUM
     Indication: Paraesthesia
  3. MAGNESIUM [Concomitant]
     Active Substance: MAGNESIUM
     Indication: Hypoaesthesia
  4. VITAMIN D3 [Concomitant]
     Active Substance: CHOLECALCIFEROL
     Indication: Paraesthesia
  5. VITAMIN D3 [Concomitant]
     Active Substance: CHOLECALCIFEROL
     Indication: Hypoaesthesia
  6. CALCIUM [Concomitant]
     Active Substance: CALCIUM
     Indication: Paraesthesia
  7. CALCIUM [Concomitant]
     Active Substance: CALCIUM
     Indication: Hypoaesthesia

REACTIONS (1)
  - Infusion related reaction [Unknown]

NARRATIVE: CASE EVENT DATE: 20240815
